FAERS Safety Report 4744166-2 (Version None)
Quarter: 2005Q3

REPORT INFORMATION
  Report Type: 
  Country: None (occurrence: None)
  Receive Date: 20050810
  Receipt Date: 20050810
  Transmission Date: 20060218
  Serious: Yes (Other)
  Sender: FDA-Public Use
  Company Number: None

PATIENT
  Age: 21 Year
  Sex: Female

DRUGS (1)
  1. NORGESTIMATE/ETHINYLESTRADIOL (GENERIC) OCP REGIMENS [Suspect]
     Indication: CONTRACEPTION
     Dosage: #28 AS DIRECTED

REACTIONS (5)
  - FEELING COLD [None]
  - HOT FLUSH [None]
  - IMPAIRED WORK ABILITY [None]
  - NAUSEA [None]
  - VOMITING [None]
